FAERS Safety Report 4660367-6 (Version None)
Quarter: 2005Q2

REPORT INFORMATION
  Report Type: 
  Country: None (occurrence: None)
  Receive Date: 20050511
  Receipt Date: 20050511
  Transmission Date: 20051028
  Serious: Yes (Hospitalization)
  Sender: FDA-Public Use
  Company Number: None

PATIENT
  Age: 61 Year
  Sex: Female
  Weight: 99 kg

DRUGS (15)
  1. AZATHIOPRINE [Suspect]
     Indication: VASCULITIS
     Dosage: 75 MG DAILY PO [CHRONIC THERAPY]
     Route: 048
  2. SYNTHROID [Concomitant]
  3. ATENOLOL [Concomitant]
  4. DIOVAN HCT [Concomitant]
  5. ASPIRIN [Concomitant]
  6. PLAVIX [Concomitant]
  7. INSULIN [Concomitant]
  8. NEXIUM [Concomitant]
  9. ZETIA [Concomitant]
  10. ATARAX [Concomitant]
  11. PREDNISONE TAB [Concomitant]
  12. IMURAN [Concomitant]
  13. HYTRIN [Concomitant]
  14. LASIX [Concomitant]
  15. ALLOPURINOL [Concomitant]

REACTIONS (7)
  - ANOREXIA [None]
  - ASTHENIA [None]
  - DIZZINESS [None]
  - DYSPNOEA EXERTIONAL [None]
  - PANCYTOPENIA [None]
  - VOMITING [None]
  - WEIGHT DECREASED [None]
